FAERS Safety Report 12519567 (Version 1)
Quarter: 2016Q2

REPORT INFORMATION
  Report Type: Spontaneous
  Country: JP (occurrence: JP)
  Receive Date: 20160630
  Receipt Date: 20160630
  Transmission Date: 20160815
  Serious: Yes (Death, Other)
  Sender: FDA-Public Use
  Company Number: JP-ASTRAZENECA-2016SE71182

PATIENT
  Age: 82 Year
  Sex: Male
  Weight: 38.4 kg

DRUGS (1)
  1. MEROPEN [Suspect]
     Active Substance: MEROPENEM
     Indication: PNEUMONIA
     Dosage: HALF DOSE OF MEROPEN (0.25 - 5 MG, EVERY 12 HOURS)
     Route: 041
     Dates: start: 20120510, end: 20120512

REACTIONS (2)
  - Cardio-respiratory arrest [Fatal]
  - Brain death [Unknown]

NARRATIVE: CASE EVENT DATE: 20120514
